FAERS Safety Report 5490958-4 (Version None)
Quarter: 2007Q4

REPORT INFORMATION
  Report Type: 
  Country: None (occurrence: None)
  Receive Date: 20071019
  Receipt Date: 20071010
  Transmission Date: 20080405
  Serious: Yes (Other)
  Sender: FDA-Public Use
  Company Number: US-PFIZER INC-2007085226

PATIENT
  Age: 52 Year
  Sex: Female

DRUGS (2)
  1. SOLU-MEDROL [Suspect]
     Route: 042
  2. REBIF [Concomitant]
     Route: 058

REACTIONS (1)
  - BLOOD GLUCOSE INCREASED [None]
